FAERS Safety Report 11774998 (Version 1)
Quarter: 2015Q4

REPORT INFORMATION
  Report Type: Spontaneous
  Country: GB (occurrence: GB)
  Receive Date: 20151124
  Receipt Date: 20151124
  Transmission Date: 20160304
  Serious: Yes (Other)
  Sender: FDA-Public Use
  Company Number: GB-BAUSCH-BL-2015-026832

PATIENT
  Age: 66 Year
  Sex: Female

DRUGS (2)
  1. AMOXICILLIN. [Concomitant]
     Active Substance: AMOXICILLIN
     Indication: PRODUCT USED FOR UNKNOWN INDICATION
  2. PREDNISOLONE. [Suspect]
     Active Substance: PREDNISOLONE
     Indication: BRONCHITIS
     Route: 065
     Dates: start: 201508

REACTIONS (5)
  - Suicidal ideation [Recovered/Resolved]
  - Aggression [Recovered/Resolved]
  - Poor quality sleep [Recovered/Resolved]
  - Abnormal behaviour [Recovered/Resolved]
  - Cough [Recovered/Resolved]

NARRATIVE: CASE EVENT DATE: 201508
